FAERS Safety Report 9687171 (Version 1)
Quarter: 2013Q4

REPORT INFORMATION
  Report Type: Spontaneous
  Country: DE (occurrence: DE)
  Receive Date: 20131113
  Receipt Date: 20131113
  Transmission Date: 20140711
  Serious: Yes (Other)
  Sender: FDA-Public Use
  Company Number: DE-ABBVIE-13P-062-1168575-00

PATIENT
  Age: 24 Year
  Sex: Female

DRUGS (3)
  1. ERGENYL CHRONO [Suspect]
     Indication: EPILEPSY
     Route: 048
     Dates: start: 20080315, end: 20081211
  2. KEPPRA [Suspect]
     Indication: EPILEPSY
     Route: 048
     Dates: start: 20080315, end: 20081211
  3. FOLIC ACID [Concomitant]
     Indication: PRODUCT USED FOR UNKNOWN INDICATION

REACTIONS (1)
  - Gestational diabetes [Unknown]
